FAERS Safety Report 15712481 (Version 3)
Quarter: 2019Q1

REPORT INFORMATION
  Report Type: Spontaneous
  Country: CH (occurrence: CH)
  Receive Date: 20181212
  Receipt Date: 20190320
  Transmission Date: 20190417
  Serious: No
  Sender: FDA-Public Use
  Company Number: CH-ROCHE-2226115

PATIENT
  Age: 37 Year
  Sex: Female

DRUGS (4)
  1. TAVEGYL [Concomitant]
     Active Substance: CLEMASTINE FUMARATE
     Indication: PREMEDICATION
     Route: 065
  2. OCREVUS [Suspect]
     Active Substance: OCRELIZUMAB
     Indication: RELAPSING MULTIPLE SCLEROSIS
     Dosage: (DAY 1 30MG, DAY 2 90MG, DAY 3 180MG)?SECOND OCRELIZUMAB INFUSION ON 18/DEC/2018
     Route: 065
     Dates: start: 201811
  3. SOLU-MEDROL [Concomitant]
     Active Substance: METHYLPREDNISOLONE SODIUM SUCCINATE
     Indication: PREMEDICATION
     Route: 065
  4. DAFALGAN [Concomitant]
     Active Substance: ACETAMINOPHEN
     Indication: PREMEDICATION
     Route: 065

REACTIONS (2)
  - Headache [Recovered/Resolved]
  - Intestinal angioedema [Recovered/Resolved]

NARRATIVE: CASE EVENT DATE: 20181123
